FAERS Safety Report 17082413 (Version 1)
Quarter: 2019Q4

REPORT INFORMATION
  Report Type: Report from Study
  Country: US (occurrence: US)
  Receive Date: 20191127
  Receipt Date: 20191127
  Transmission Date: 20200122
  Serious: Yes (Other)
  Sender: FDA-Public Use
  Company Number: NVSC2019US020862

PATIENT
  Age: 41 Year
  Sex: Female

DRUGS (1)
  1. COSENTYX [Suspect]
     Active Substance: SECUKINUMAB
     Indication: PSORIATIC ARTHROPATHY
     Route: 065

REACTIONS (8)
  - Pain [Recovering/Resolving]
  - Ocular hyperaemia [Unknown]
  - Nodule [Recovering/Resolving]
  - Eye swelling [Unknown]
  - Eye pain [Unknown]
  - Uveitis [Not Recovered/Not Resolved]
  - Eye disorder [Recovering/Resolving]
  - Eye inflammation [Unknown]
